FAERS Safety Report 9292946 (Version 3)
Quarter: 2015Q2

REPORT INFORMATION
  Report Type: Spontaneous
  Country: US (occurrence: US)
  Receive Date: 20130516
  Receipt Date: 20150619
  Transmission Date: 20150821
  Serious: No
  Sender: FDA-Public Use
  Company Number: US-009507513-1305USA008473

PATIENT
  Sex: Male
  Weight: 97.52 kg

DRUGS (2)
  1. ALLEGRA ALLERGY [Concomitant]
     Active Substance: FEXOFENADINE HYDROCHLORIDE
  2. PROPECIA [Suspect]
     Active Substance: FINASTERIDE
     Indication: ALOPECIA
     Dosage: 1 MG, QD
     Route: 048
     Dates: start: 20070523, end: 201307

REACTIONS (18)
  - Organic erectile dysfunction [Unknown]
  - Depression [Unknown]
  - Nocturia [Unknown]
  - Wisdom teeth removal [Unknown]
  - Depression [Not Recovered/Not Resolved]
  - Anxiety [Unknown]
  - Muscle rigidity [Unknown]
  - Libido decreased [Unknown]
  - Pollakiuria [Unknown]
  - Scoliosis [Unknown]
  - Fatigue [Unknown]
  - Epididymitis [Unknown]
  - Affective disorder [Unknown]
  - Anxiety [Unknown]
  - Sexual dysfunction [Not Recovered/Not Resolved]
  - Erectile dysfunction [Not Recovered/Not Resolved]
  - Anxiety [Not Recovered/Not Resolved]
  - Back pain [Unknown]

NARRATIVE: CASE EVENT DATE: 2007
